FAERS Safety Report 24166334 (Version 1)
Quarter: 2024Q3

REPORT INFORMATION
  Report Type: Spontaneous
  Country: IL (occurrence: IL)
  Receive Date: 20240802
  Receipt Date: 20240802
  Transmission Date: 20241016
  Serious: No
  Sender: ALKEM
  Company Number: IL-ALKEM LABORATORIES LIMITED-IL-ALKEM-2023-07492

PATIENT
  Sex: Female
  Weight: 55 kg

DRUGS (1)
  1. LAMOTRIGINE [Suspect]
     Active Substance: LAMOTRIGINE
     Indication: Epilepsy
     Dosage: 400 MILLIGRAM, QD (TOTAL DAILY DOSE) (MATERNAL DAILY EXPOSURE DAILY DOSE 7.27 MG/KG/DAY)
     Route: 048

REACTIONS (1)
  - Maternal exposure during breast feeding [Unknown]
